FAERS Safety Report 5662188-4 (Version None)
Quarter: 2008Q1

REPORT INFORMATION
  Report Type: 
  Country: None (occurrence: None)
  Receive Date: 20080312
  Receipt Date: 20080305
  Transmission Date: 20080703
  Serious: Yes (Disabling)
  Sender: FDA-Public Use
  Company Number: IE-ABBOTT-08P-229-0439443-00

PATIENT
  Age: 50 Year
  Sex: Female

DRUGS (4)
  1. REDUCTIL 15MG [Suspect]
     Indication: OBESITY
     Route: 048
     Dates: start: 20080220, end: 20080222
  2. SERETIDE [Concomitant]
     Indication: ASTHMA
     Route: 055
  3. ALBUTEROL [Concomitant]
     Indication: ASTHMA
     Route: 055
  4. PANTOPRAZOLE SODIUM [Concomitant]
     Indication: DYSPEPSIA
     Route: 048

REACTIONS (3)
  - ANXIETY [None]
  - PALPITATIONS [None]
  - PANIC ATTACK [None]
